FAERS Safety Report 14621052 (Version 2)
Quarter: 2018Q3

REPORT INFORMATION
  Report Type: Spontaneous
  Country: FR (occurrence: FR)
  Receive Date: 20180309
  Receipt Date: 20180731
  Transmission Date: 20181010
  Serious: Yes (Other)
  Sender: FDA-Public Use
  Company Number: FR-ABBVIE-18P-056-2252609-00

PATIENT
  Sex: Male

DRUGS (2)
  1. ALEPSAL [Concomitant]
     Active Substance: ATROPA BELLADONNA\CAFFEINE\PHENOBARBITAL
     Indication: EPILEPSY
  2. DEPAKINE [Suspect]
     Active Substance: VALPROATE SODIUM
     Indication: EPILEPSY
     Route: 048
     Dates: start: 1973

REACTIONS (7)
  - Compartment syndrome [Unknown]
  - Seizure [Unknown]
  - Insomnia [Not Recovered/Not Resolved]
  - Mood swings [Not Recovered/Not Resolved]
  - Erectile dysfunction [Unknown]
  - Pancreatic carcinoma [Not Recovered/Not Resolved]
  - Feeding disorder [Not Recovered/Not Resolved]
